FAERS Safety Report 9334355 (Version 1)
Quarter: 2013Q2

REPORT INFORMATION
  Report Type: Spontaneous
  Country: GR (occurrence: None)
  Receive Date: 20130604
  Receipt Date: 20130604
  Transmission Date: 20140414
  Serious: Yes (Hospitalization, Other)
  Sender: FDA-Public Use
  Company Number: FK201301765

PATIENT
  Age: 44 Year
  Sex: Female

DRUGS (1)
  1. COLISTIMETHATE [Suspect]
     Indication: ACINETOBACTER TEST POSITIVE
     Dosage: 40 MG, FIRST DAY, INTRAVENTRICULAR?
     Route: 018

REACTIONS (3)
  - Meningitis chemical [None]
  - Off label use [None]
  - Off label use [None]
